FAERS Safety Report 4954340-8 (Version None)
Quarter: 2006Q1

REPORT INFORMATION
  Report Type: 
  Country: None (occurrence: None)
  Receive Date: 20060327
  Receipt Date: 20060315
  Transmission Date: 20060701
  Serious: Yes (Other)
  Sender: FDA-Public Use
  Company Number: PHHO2006BR04607

PATIENT
  Age: 46 Year
  Sex: Female
  Weight: 63 kg

DRUGS (4)
  1. ZELMAC / HTF 919A [Suspect]
     Dosage: BID
     Route: 048
     Dates: start: 20060101, end: 20060201
  2. PLANTABEN [Concomitant]
     Indication: GASTROINTESTINAL DISORDER
  3. PREMARIN [Concomitant]
     Indication: HORMONE REPLACEMENT THERAPY
  4. HORMONES [Concomitant]
     Indication: HORMONE REPLACEMENT THERAPY

REACTIONS (10)
  - ABDOMINAL PAIN [None]
  - ALOPECIA [None]
  - CONFUSIONAL STATE [None]
  - DYSSTASIA [None]
  - PAIN [None]
  - PAIN IN EXTREMITY [None]
  - SKIN DISORDER [None]
  - SOMNOLENCE [None]
  - SYNCOPE [None]
  - VOMITING [None]
